FAERS Safety Report 4518958-9 (Version None)
Quarter: 2004Q4

REPORT INFORMATION
  Report Type: 
  Country: None (occurrence: None)
  Receive Date: 20041203
  Receipt Date: 20041203
  Transmission Date: 20050328
  Serious: Yes (Hospitalization)
  Sender: FDA-Public Use
  Company Number: None

PATIENT
  Age: 40 Year
  Sex: Male
  Weight: 68.0396 kg

DRUGS (2)
  1. DOXYCYCLINE (CAPSULES) WATSON [Suspect]
     Indication: PROPHYLAXIS
     Dosage: 100 MG PO
     Route: 048
  2. NASONEX [Concomitant]

REACTIONS (1)
  - OESOPHAGEAL INJURY [None]
